FAERS Safety Report 21461519 (Version 1)
Quarter: 2022Q4

REPORT INFORMATION
  Report Type: Report from Study
  Country: US (occurrence: US)
  Receive Date: 20221015
  Receipt Date: 20221015
  Transmission Date: 20230112
  Serious: No
  Sender: FDA-Public Use
  Company Number: US-ABBVIE-4142870

PATIENT

DRUGS (4)
  1. HUMIRA [Suspect]
     Active Substance: ADALIMUMAB
     Indication: Dermatitis atopic
     Dosage: CF
     Route: 058
  2. HUMIRA [Suspect]
     Active Substance: ADALIMUMAB
     Dosage: CF
     Route: 058
  3. Pfizer/BioNTech Covid 19 Vaccine [Concomitant]
     Indication: COVID-19 immunisation
     Route: 030
  4. HUMIRA [Suspect]
     Active Substance: ADALIMUMAB

REACTIONS (2)
  - Skin disorder [Unknown]
  - COVID-19 [Unknown]
